FAERS Safety Report 15692086 (Version 1)
Quarter: 2018Q4

REPORT INFORMATION
  Report Type: Spontaneous
  Country: DE (occurrence: DE)
  Receive Date: 20181205
  Receipt Date: 20181205
  Transmission Date: 20190205
  Serious: Yes (Life-Threatening)
  Sender: FDA-Public Use
  Company Number: PHHY2018DE175233

PATIENT
  Age: 64 Year
  Sex: Male
  Weight: 80 kg

DRUGS (7)
  1. ONDANSETRON [Concomitant]
     Active Substance: ONDANSETRON
     Indication: ANTIEMETIC SUPPORTIVE CARE
     Dosage: 8 MG, UNK
     Route: 042
  2. CAPECITABINE. [Suspect]
     Active Substance: CAPECITABINE
     Indication: COLON CANCER
     Dosage: 3000 MG, (2 X 1500 MG)
     Route: 048
     Dates: start: 20181015, end: 20181015
  3. OXALIPLATIN. [Suspect]
     Active Substance: OXALIPLATIN
     Indication: COLON CANCER
     Dosage: 195 MG, (STRENGTH:  200 MG/40 ML)
     Route: 042
     Dates: start: 20181015, end: 20181015
  4. DEXAMETHASONE. [Concomitant]
     Active Substance: DEXAMETHASONE
     Indication: ANTIEMETIC SUPPORTIVE CARE
     Dosage: 8 MG, UNK
     Route: 042
  5. OXALIPLATIN. [Suspect]
     Active Substance: OXALIPLATIN
     Dosage: 170 MG, (50 MG/10 ML)
     Route: 042
     Dates: start: 20181025, end: 20181025
  6. FOLINIC ACID [Suspect]
     Active Substance: LEUCOVORIN
     Indication: CHEMOTHERAPY
     Dosage: 400 MG, UNK
     Route: 042
     Dates: start: 20181025, end: 20181025
  7. FLUOROURACIL. [Suspect]
     Active Substance: FLUOROURACIL
     Indication: CHEMOTHERAPY
     Dosage: 5200 MG, UNK
     Route: 042
     Dates: start: 20181025, end: 20181026

REACTIONS (6)
  - Blood pressure decreased [Recovered/Resolved]
  - Tachycardia [Recovered/Resolved]
  - Tachycardia [Recovered/Resolved]
  - Pruritus [Recovered/Resolved]
  - Loss of consciousness [Recovered/Resolved]
  - Flushing [Recovered/Resolved]

NARRATIVE: CASE EVENT DATE: 20181015
